FAERS Safety Report 16705138 (Version 2)
Quarter: 2019Q3

REPORT INFORMATION
  Report Type: Spontaneous
  Country: IT (occurrence: IT)
  Receive Date: 20190815
  Receipt Date: 20190828
  Transmission Date: 20191004
  Serious: Yes (Other)
  Sender: FDA-Public Use
  Company Number: IT-CELLTRION INC.-2019IT023694

PATIENT

DRUGS (1)
  1. RITUXIMAB (UNKNOWN) [Suspect]
     Active Substance: RITUXIMAB
     Indication: GLOMERULONEPHRITIS MEMBRANOUS
     Dosage: 375 MG/M2, UNK
     Route: 041

REACTIONS (4)
  - Proteinuria [Unknown]
  - Product use in unapproved indication [Unknown]
  - Renal impairment [Unknown]
  - Nephrotic syndrome [Unknown]
